FAERS Safety Report 4796188-3 (Version None)
Quarter: 2005Q4

REPORT INFORMATION
  Report Type: 
  Country: None (occurrence: None)
  Receive Date: 20051006
  Receipt Date: 20051006
  Transmission Date: 20060501
  Serious: Yes (Hospitalization)
  Sender: FDA-Public Use
  Company Number: None

PATIENT
  Age: 71 Year
  Sex: Female
  Weight: 66 kg

DRUGS (1)
  1. TOREMIFENE 60MG [Suspect]
     Indication: BREAST CANCER
     Dosage: QDAY P.O.
     Route: 048
     Dates: start: 20010725, end: 20050628

REACTIONS (1)
  - CEREBROVASCULAR ACCIDENT [None]
